FAERS Safety Report 22115226 (Version 1)
Quarter: 2023Q1

REPORT INFORMATION
  Report Type: Spontaneous
  Country: US (occurrence: None)
  Receive Date: 20230318
  Receipt Date: 20230318
  Transmission Date: 20230418
  Serious: Yes (Hospitalization)
  Sender: FDA-Public Use
  Company Number: None

PATIENT
  Age: 38 Year
  Sex: Female
  Weight: 56.25 kg

DRUGS (1)
  1. SQUALANE ZINC SHEER MINERAL SUNSCREEN [Suspect]
     Active Substance: ZINC OXIDE
     Indication: Prophylaxis against solar radiation
     Dosage: OTHER QUANTITY : 1 TABLESPOON(S);?
     Route: 061
     Dates: start: 20230316, end: 20230316

REACTIONS (5)
  - Swelling [None]
  - Urticaria [None]
  - Rash [None]
  - Hypersensitivity [None]
  - Application site reaction [None]

NARRATIVE: CASE EVENT DATE: 20230316
